FAERS Safety Report 4639282-X (Version None)
Quarter: 2005Q2

REPORT INFORMATION
  Report Type: 
  Country: None (occurrence: None)
  Receive Date: 20050418
  Receipt Date: 20050406
  Transmission Date: 20051028
  Serious: Yes (Life-Threatening, Hospitalization)
  Sender: FDA-Public Use
  Company Number: 04I-087-0284946-00

PATIENT
  Age: 72 Year
  Sex: Male

DRUGS (14)
  1. CLARITH (BIAXIN) (CLARITHROMYCIN) (CLARITHROMYCIN) [Suspect]
     Indication: HELICOBACTER INFECTION
     Dosage: 200 MG, 2 IN 1 D, PER ORAL
     Route: 048
     Dates: start: 20041130, end: 20041207
  2. LEUPLIN FOR INJECTION (LEUPROLIDE ACETATE DEPOT) (LEUPROLIDE ACETATE D [Suspect]
     Indication: PROSTATE CANCER
     Dosage: SEE IMAGE
     Route: 058
     Dates: start: 20040513, end: 20041028
  3. LEUPLIN FOR INJECTION (LEUPROLIDE ACETATE DEPOT) (LEUPROLIDE ACETATE D [Suspect]
     Indication: PROSTATE CANCER
     Dosage: SEE IMAGE
     Route: 058
     Dates: start: 20041125, end: 20041125
  4. LANSOPRAZOLE [Suspect]
     Indication: HELICOBACTER INFECTION
     Dosage: SEE IMAGE
     Route: 048
     Dates: start: 20041130, end: 20041207
  5. LANSOPRAZOLE [Suspect]
     Indication: HELICOBACTER INFECTION
     Dosage: SEE IMAGE
     Route: 048
     Dates: start: 20041208, end: 20041227
  6. AMOXICILLIN [Suspect]
     Indication: HELICOBACTER INFECTION
     Dosage: 500 MG, 3 IN 1 D, PER ORAL
     Route: 048
     Dates: start: 20041130, end: 20041207
  7. ECABET MONOSODIUM [Suspect]
     Indication: GASTRIC ULCER
     Dosage: 1.5 MG, 2 IN 1 D, PER ORAL
     Route: 048
     Dates: start: 20041208, end: 20041228
  8. TROXIPIDE [Concomitant]
  9. FAMOTIDINE [Concomitant]
  10. METRONIDAZOLE [Concomitant]
  11. OXETACAINE [Concomitant]
  12. KOLANTYL [Concomitant]
  13. BICALUTAMIDE [Concomitant]
  14. INSULIN [Concomitant]

REACTIONS (22)
  - ANOREXIA [None]
  - APHAGIA [None]
  - ASCITES [None]
  - BLOOD ALBUMIN DECREASED [None]
  - BLOOD CHOLINESTERASE DECREASED [None]
  - BLOOD IMMUNOGLOBULIN A INCREASED [None]
  - BLOOD IMMUNOGLOBULIN G INCREASED [None]
  - CARCINOEMBRYONIC ANTIGEN INCREASED [None]
  - CONDITION AGGRAVATED [None]
  - DIABETES MELLITUS [None]
  - GASTRIC ULCER [None]
  - GLOBULINS INCREASED [None]
  - HELICOBACTER INFECTION [None]
  - HEPATIC ATROPHY [None]
  - HEPATIC FAILURE [None]
  - HEPATIC NEOPLASM [None]
  - HOT FLUSH [None]
  - LIVER DISORDER [None]
  - MALAISE [None]
  - OEDEMA PERIPHERAL [None]
  - POLYP [None]
  - RED BLOOD CELL COUNT DECREASED [None]
